FAERS Safety Report 8769430 (Version 1)
Quarter: 2012Q4

REPORT INFORMATION
  Report Type: 
  Country: US (occurrence: US)
  Receive Date: 20120905
  Receipt Date: 20120905
  Transmission Date: 20130627
  Serious: No
  Sender: FDA-Public Use
  Company Number: US-MYLANLABS-2012S1009929

PATIENT
  Sex: Female

DRUGS (7)
  1. SPIRONOLACTONE [Suspect]
     Indication: HYPERTENSION
     Route: 048
     Dates: start: 201204
  2. VERAPAMIL HYDROCHLORIDE [Concomitant]
     Indication: HYPERTENSION
  3. PREDNISONE [Concomitant]
     Dates: start: 2011
  4. BUMETANIDE [Concomitant]
     Indication: HYPERTENSION
     Dates: start: 2011
  5. ATACAND [Concomitant]
     Indication: HYPERTENSION
     Dates: start: 2009
  6. THYROID [Concomitant]
     Indication: HYPOTHYROIDISM
  7. TACLONEX [Concomitant]
     Indication: PSORIASIS
     Dates: start: 2009

REACTIONS (1)
  - Contusion [Not Recovered/Not Resolved]
